FAERS Safety Report 22361235 (Version 1)
Quarter: 2023Q2

REPORT INFORMATION
  Report Type: Report from Study
  Country: US (occurrence: US)
  Receive Date: 20230524
  Receipt Date: 20230524
  Transmission Date: 20230721
  Serious: Yes (Hospitalization)
  Sender: FDA-Public Use
  Company Number: US-ABBVIE-4321113

PATIENT
  Age: 60 Year
  Sex: Male

DRUGS (3)
  1. SKYRIZI [Suspect]
     Active Substance: RISANKIZUMAB-RZAA
     Indication: Psoriasis
     Dosage: 150MG PEN UNDER THE SKIN AT WEEK 0, WEEK 4, THEN EVERY 12 WEEKS THEREAFTER.?FORM STRENGTH: 150 MG
     Route: 058
  2. SKYRIZI [Suspect]
     Active Substance: RISANKIZUMAB-RZAA
     Dosage: STRENGTH: 150 MILLIGRAM?WEEK 0
     Route: 058
     Dates: start: 20230119, end: 20230119
  3. SKYRIZI [Suspect]
     Active Substance: RISANKIZUMAB-RZAA
     Dosage: STRENGTH: 150 MILLIGRAM?WEEK 4
     Route: 058
     Dates: start: 20230215, end: 20230215

REACTIONS (6)
  - Hiatus hernia [Unknown]
  - Erythema [Unknown]
  - Arthralgia [Unknown]
  - Pneumonia [Unknown]
  - Erythema [Recovered/Resolved]
  - Pruritus [Unknown]

NARRATIVE: CASE EVENT DATE: 20230201
